FAERS Safety Report 15861733 (Version 1)
Quarter: 2018Q4

REPORT INFORMATION
  Report Type: Spontaneous
  Country: US (occurrence: US)
  Receive Date: 20181231
  Receipt Date: 20181231
  Transmission Date: 20190205
  Serious: No
  Sender: FDA-Public Use
  Company Number: None

PATIENT
  Age: 28 Year

DRUGS (1)
  1. GLATIRAMER 40MG PFS INJ (12/BOX) [Suspect]
     Active Substance: GLATIRAMER
     Route: 058
     Dates: start: 201812

REACTIONS (6)
  - Injection site reaction [None]
  - Injection site erythema [None]
  - Injection site pruritus [None]
  - Injection site swelling [None]
  - Muscle tightness [None]
  - Malaise [None]

NARRATIVE: CASE EVENT DATE: 20181227
